FAERS Safety Report 4360670-3 (Version None)
Quarter: 2004Q2

REPORT INFORMATION
  Report Type: 
  Country: None (occurrence: None)
  Receive Date: 20040514
  Receipt Date: 20040405
  Transmission Date: 20050107
  Serious: Yes (Hospitalization, Other)
  Sender: FDA-Public Use
  Company Number: KII-2004-0010215

PATIENT
  Age: 48 Year
  Sex: Male

DRUGS (5)
  1. MORPHINE SULFATE [Suspect]
     Dosage: ORAL
     Route: 048
  2. OTHER HYPNOTICS AND SEDATIVES (OTHER HYPNOTICS AND SEDATIVES) [Suspect]
     Dosage: ORAL
     Route: 048
  3. ALCOHOL (ETHANOL) [Suspect]
  4. ACETYLSALICYLIC ACID SRT [Suspect]
  5. ACETAMINOPHEN [Suspect]

REACTIONS (13)
  - AGGRESSION [None]
  - BLOOD ALCOHOL INCREASED [None]
  - COMA [None]
  - DIARRHOEA [None]
  - DRUG SCREEN POSITIVE [None]
  - MIGRAINE [None]
  - MULTIPLE DRUG OVERDOSE [None]
  - RESPIRATORY ARREST [None]
  - RHONCHI [None]
  - SINUS TACHYCARDIA [None]
  - SOMNOLENCE [None]
  - VOMITING [None]
  - WHITE BLOOD CELL COUNT INCREASED [None]
